FAERS Safety Report 14401804 (Version 1)
Quarter: 2018Q1

REPORT INFORMATION
  Report Type: Spontaneous
  Country: US (occurrence: US)
  Receive Date: 20180117
  Receipt Date: 20180117
  Transmission Date: 20180509
  Serious: Yes (Other)
  Sender: FDA-Public Use
  Company Number: US-BIOGEN-2018BI00509941

PATIENT
  Sex: Female

DRUGS (1)
  1. TYSABRI [Suspect]
     Active Substance: NATALIZUMAB
     Indication: MULTIPLE SCLEROSIS
     Route: 065
     Dates: start: 20130109

REACTIONS (6)
  - Headache [Unknown]
  - Palpitations [Unknown]
  - Pharyngeal ulceration [Unknown]
  - Retinal vascular thrombosis [Unknown]
  - Stomatitis [Unknown]
  - Influenza like illness [Unknown]
